FAERS Safety Report 25998730 (Version 1)
Quarter: 2025Q4

REPORT INFORMATION
  Report Type: Spontaneous
  Country: US (occurrence: US)
  Receive Date: 20251105
  Receipt Date: 20251105
  Transmission Date: 20260118
  Serious: Yes (Hospitalization, Other)
  Sender: APOTEX
  Company Number: US-APOTEX-2025AP031986

PATIENT
  Sex: Female

DRUGS (1)
  1. TRANEXAMIC ACID [Suspect]
     Active Substance: TRANEXAMIC ACID
     Indication: Product used for unknown indication
     Dosage: 200 MILLIGRAM (APPROXIMATELY)
     Route: 037

REACTIONS (6)
  - Status epilepticus [Unknown]
  - Tachycardia [Unknown]
  - Myoclonus [Recovered/Resolved]
  - Incorrect route of product administration [Unknown]
  - Seizure [Unknown]
  - Hypotension [Unknown]
